FAERS Safety Report 21351538 (Version 3)
Quarter: 2022Q4

REPORT INFORMATION
  Report Type: Spontaneous
  Country: US (occurrence: US)
  Receive Date: 20220919
  Receipt Date: 20221206
  Transmission Date: 20230113
  Serious: No
  Sender: FDA-Public Use
  Company Number: US-LUNDBECK-DKLU3052094

PATIENT
  Age: 64 Year
  Sex: Female

DRUGS (7)
  1. VYEPTI [Suspect]
     Active Substance: EPTINEZUMAB-JJMR
     Indication: Migraine
     Route: 041
     Dates: start: 202209
  2. DULOXETINE [Concomitant]
     Active Substance: DULOXETINE
     Indication: Product used for unknown indication
     Route: 065
  3. NURTEC ODT [Concomitant]
     Active Substance: RIMEGEPANT SULFATE
     Indication: Product used for unknown indication
     Route: 065
  4. ESTRADIOL [Concomitant]
     Active Substance: ESTRADIOL
     Indication: Product used for unknown indication
     Route: 065
  5. LEVALBUTEROL [Concomitant]
     Active Substance: LEVALBUTEROL
     Indication: Product used for unknown indication
     Route: 055
  6. RABEPRAZOLE [Concomitant]
     Active Substance: RABEPRAZOLE
     Indication: Product used for unknown indication
     Route: 065
  7. MONTELUKAST [Concomitant]
     Active Substance: MONTELUKAST SODIUM
     Indication: Product used for unknown indication
     Route: 065

REACTIONS (2)
  - Nasopharyngitis [Recovered/Resolved]
  - Oral herpes [Recovered/Resolved]

NARRATIVE: CASE EVENT DATE: 20220901
